FAERS Safety Report 6481338-3 (Version None)
Quarter: 2009Q4

REPORT INFORMATION
  Report Type: 
  Country: None (occurrence: None)
  Receive Date: 20091208
  Receipt Date: 20091127
  Transmission Date: 20100525
  Serious: Yes (Hospitalization)
  Sender: FDA-Public Use
  Company Number: B0602372A

PATIENT
  Sex: Female
  Weight: 62 kg

DRUGS (3)
  1. ZYBAN [Suspect]
     Indication: DRUG TOXICITY
     Route: 065
     Dates: start: 20090613, end: 20090628
  2. GLUCOPHAGE [Concomitant]
     Route: 065
  3. ALLOPURINOL [Concomitant]
     Indication: GOUT
     Route: 065

REACTIONS (2)
  - PRURITUS [None]
  - PSORIASIS [None]
